FAERS Safety Report 23203858 (Version 1)
Quarter: 2023Q4

REPORT INFORMATION
  Report Type: Spontaneous
  Country: US (occurrence: US)
  Receive Date: 20231120
  Receipt Date: 20231120
  Transmission Date: 20240110
  Serious: Yes (Other)
  Sender: FDA-Public Use
  Company Number: US-ORGANON-O2311USA001623

PATIENT
  Age: 38 Year
  Sex: Female
  Weight: 61.678 kg

DRUGS (2)
  1. NEXPLANON [Suspect]
     Active Substance: ETONOGESTREL
     Indication: Contraception
     Dosage: 1 IMPLANT, LEFT ARM, EVERY 3 YEARS
     Route: 059
     Dates: start: 20230928, end: 20231106
  2. CATAPRES [Concomitant]
     Active Substance: CLONIDINE HYDROCHLORIDE

REACTIONS (6)
  - Device expulsion [Recovered/Resolved]
  - Implant site erythema [Unknown]
  - Implant site swelling [Unknown]
  - Medical device site scab [Unknown]
  - Implant site pain [Unknown]
  - Device placement issue [Recovered/Resolved]

NARRATIVE: CASE EVENT DATE: 20231013
